FAERS Safety Report 22176155 (Version 1)
Quarter: 2023Q2

REPORT INFORMATION
  Report Type: Spontaneous
  Country: US (occurrence: None)
  Receive Date: 20230404
  Receipt Date: 20230404
  Transmission Date: 20230722
  Serious: Yes (unspecified)
  Sender: FDA-Public Use
  Company Number: None

PATIENT
  Sex: 0

DRUGS (1)
  1. ENOXAPARIN [Suspect]
     Active Substance: ENOXAPARIN
     Dates: start: 20230118

REACTIONS (4)
  - Dose calculation error [None]
  - Inappropriate schedule of product administration [None]
  - Product communication issue [None]
  - Product administration error [None]

NARRATIVE: CASE EVENT DATE: 20230118
